FAERS Safety Report 25483668 (Version 2)
Quarter: 2025Q3

REPORT INFORMATION
  Report Type: Spontaneous
  Country: CN (occurrence: CN)
  Receive Date: 20250626
  Receipt Date: 20250709
  Transmission Date: 20251021
  Serious: Yes (Hospitalization, Other)
  Sender: JAZZ
  Company Number: CN-NJLY-XML-2025LURBI00123

PATIENT
  Age: 59 Year
  Sex: Male
  Weight: 59 kg

DRUGS (4)
  1. ZEPZELCA [Suspect]
     Active Substance: LURBINECTEDIN
     Indication: Lung cancer metastatic
     Dosage: 300 MILLIGRAM, Q3W
     Route: 042
     Dates: start: 20250430, end: 20250601
  2. DURVALUMAB [Suspect]
     Active Substance: DURVALUMAB
     Indication: Lung cancer metastatic
     Dosage: 600 MILLIGRAM, Q2W
     Route: 042
     Dates: start: 20250430, end: 20250601
  3. SODIUM CHLORIDE [Concomitant]
     Active Substance: SODIUM CHLORIDE
     Indication: Vehicle solution use
     Dosage: 250 MILLILITER, Q3W
     Route: 042
     Dates: start: 20250430
  4. SODIUM CHLORIDE [Concomitant]
     Active Substance: SODIUM CHLORIDE
     Dosage: 250 MILLILITER, Q2W
     Route: 042
     Dates: start: 20250430

REACTIONS (2)
  - Myelosuppression [Recovering/Resolving]
  - Overdose [Recovering/Resolving]

NARRATIVE: CASE EVENT DATE: 20250430
